FAERS Safety Report 15939318 (Version 1)
Quarter: 2019Q1

REPORT INFORMATION
  Report Type: Spontaneous
  Country: DE (occurrence: DE)
  Receive Date: 20190208
  Receipt Date: 20190208
  Transmission Date: 20190417
  Serious: Yes (Other)
  Sender: FDA-Public Use
  Company Number: DE-JNJFOC-20190205908

PATIENT
  Sex: Female

DRUGS (3)
  1. CEFUROXIME. [Concomitant]
     Active Substance: CEFUROXIME
     Route: 065
  2. XARELTO [Suspect]
     Active Substance: RIVAROXABAN
     Indication: VENOUS THROMBOSIS LIMB
     Route: 048
  3. XARELTO [Suspect]
     Active Substance: RIVAROXABAN
     Indication: FACTOR V DEFICIENCY
     Route: 048

REACTIONS (3)
  - Labelled drug-disease interaction medication error [Unknown]
  - Diverticulitis [Unknown]
  - Contraindicated product prescribed [Unknown]
